FAERS Safety Report 10078421 (Version 2)
Quarter: 2014Q4

REPORT INFORMATION
  Report Type: Spontaneous
  Country: US (occurrence: US)
  Receive Date: 20140415
  Receipt Date: 20141226
  Transmission Date: 20150528
  Serious: Yes (Hospitalization, Other)
  Sender: FDA-Public Use
  Company Number: US-BAYER-2014-054892

PATIENT
  Age: 46 Year
  Sex: Female
  Weight: 61.22 kg

DRUGS (2)
  1. YAZ [Suspect]
     Active Substance: DROSPIRENONE\ETHINYL ESTRADIOL
     Dosage: UNK
     Dates: end: 2009
  2. OCELLA [Suspect]
     Active Substance: DROSPIRENONE\ETHINYL ESTRADIOL
     Dosage: UNK
     Dates: end: 2009

REACTIONS (8)
  - Cerebrovascular accident [None]
  - Pain [None]
  - Injury [None]
  - Thrombosis [None]
  - Pulmonary embolism [None]
  - Mental disorder [None]
  - Deep vein thrombosis [None]
  - Emotional distress [None]

NARRATIVE: CASE EVENT DATE: 20040709
